FAERS Safety Report 5927913-3 (Version None)
Quarter: 2008Q4

REPORT INFORMATION
  Report Type: 
  Country: None (occurrence: None)
  Receive Date: 20081021
  Receipt Date: 20081015
  Transmission Date: 20090506
  Serious: Yes (Death, Hospitalization)
  Sender: FDA-Public Use
  Company Number: US024449

PATIENT
  Age: 62 Year
  Sex: Male
  Weight: 131.5431 kg

DRUGS (19)
  1. PROVIGIL [Suspect]
     Indication: SLEEP APNOEA SYNDROME
     Dosage: 200 MG QD ORAL
     Route: 048
     Dates: start: 20080819, end: 20080819
  2. PLAVIX [Concomitant]
  3. NORVASC [Concomitant]
  4. CATAPRESS /00171101/ [Concomitant]
  5. DIOVAN /01319601/ [Concomitant]
  6. HYDROCHLOROTHIZIDE HCL [Concomitant]
  7. ASPIRIN [Concomitant]
  8. METOPROLOL TARTRATE [Concomitant]
  9. ALLOPURINOL [Concomitant]
  10. AMARYL [Concomitant]
  11. DEMADEX [Concomitant]
  12. ZOCOR [Concomitant]
  13. CYMBALTA [Concomitant]
  14. ZOLPIDEM TARTRATE [Concomitant]
  15. DIPHENHYDRAMINE HCL [Concomitant]
  16. CLONAZEPAM [Concomitant]
  17. GABAPENTIN [Concomitant]
  18. MORPHINE SULFATE [Concomitant]
  19. PROCRIT [Concomitant]

REACTIONS (7)
  - DYSPHONIA [None]
  - EYE SWELLING [None]
  - MUSCULOSKELETAL PAIN [None]
  - NECK PAIN [None]
  - OEDEMA MOUTH [None]
  - RENAL FAILURE ACUTE [None]
  - SWELLING FACE [None]
